FAERS Safety Report 20674755 (Version 1)
Quarter: 2022Q2

REPORT INFORMATION
  Report Type: Spontaneous
  Country: US (occurrence: None)
  Receive Date: 20220404
  Receipt Date: 20220404
  Transmission Date: 20220721
  Serious: No
  Sender: FDA-Public Use
  Company Number: None

PATIENT
  Age: 49 Year
  Sex: Female
  Weight: 63 kg

DRUGS (1)
  1. TRAZODONE [Suspect]
     Active Substance: TRAZODONE HYDROCHLORIDE
     Indication: Sleep disorder
     Dosage: FREQUENCY : AT BEDTIME;?
     Route: 048
     Dates: start: 20220107, end: 20220404

REACTIONS (6)
  - Product substitution issue [None]
  - Therapy non-responder [None]
  - Suspected product quality issue [None]
  - Sleep disorder [None]
  - Panic reaction [None]
  - Anxiety [None]

NARRATIVE: CASE EVENT DATE: 20220404
